FAERS Safety Report 6544087-9 (Version None)
Quarter: 2010Q1

REPORT INFORMATION
  Report Type: 
  Country: None (occurrence: None)
  Receive Date: 20100119
  Receipt Date: 20100119
  Transmission Date: 20100710
  Serious: Yes (Other)
  Sender: FDA-Public Use
  Company Number: None

PATIENT
  Sex: Female
  Weight: 99.7913 kg

DRUGS (6)
  1. VYVANSE [Suspect]
     Indication: ATTENTION DEFICIT/HYPERACTIVITY DISORDER
     Dosage: 30MG ONCE PER DAY PO
     Route: 048
     Dates: start: 20090410, end: 20091130
  2. VYVANSE [Suspect]
     Indication: DEPRESSION
     Dosage: 30MG ONCE PER DAY PO
     Route: 048
     Dates: start: 20090410, end: 20091130
  3. LEXAPRO [Concomitant]
  4. LAMICTAL [Concomitant]
  5. SYNTHROID [Concomitant]
  6. CRESTOR [Concomitant]

REACTIONS (1)
  - TARDIVE DYSKINESIA [None]
